FAERS Safety Report 10782331 (Version 1)
Quarter: 2015Q1

REPORT INFORMATION
  Report Type: Spontaneous
  Country: US (occurrence: US)
  Receive Date: 20150210
  Receipt Date: 20150210
  Transmission Date: 20150721
  Serious: No
  Sender: FDA-Public Use
  Company Number: US-BAUSCH-SYM-2013-14441

PATIENT
  Sex: Female

DRUGS (1)
  1. XENAZINE [Suspect]
     Active Substance: TETRABENAZINE
     Indication: HUNTINGTON^S DISEASE
     Dosage: 1/2 TABLET OF 25 MG, ONCE DAILY
     Route: 048
     Dates: start: 20130918

REACTIONS (3)
  - Hypersomnia [Unknown]
  - Medication error [Unknown]
  - Drug ineffective [Unknown]
